FAERS Safety Report 14551066 (Version 1)
Quarter: 2018Q1

REPORT INFORMATION
  Report Type: Spontaneous
  Country: US (occurrence: US)
  Receive Date: 20180220
  Receipt Date: 20180220
  Transmission Date: 20180509
  Serious: No
  Sender: FDA-Public Use
  Company Number: US-TEVA-802103ACC

PATIENT
  Sex: Female

DRUGS (1)
  1. FIORICET [Suspect]
     Active Substance: ACETAMINOPHEN\BUTALBITAL\CAFFEINE
     Indication: CERVICAL RADICULOPATHY
     Dosage: STRENGTH: BUTALBITAL 50 MG/ACETAMINOPHEN 325 MG/CAFFEINE 40 MG

REACTIONS (1)
  - Tinnitus [Recovered/Resolved]

NARRATIVE: CASE EVENT DATE: 2017
